FAERS Safety Report 4787540-0 (Version None)
Quarter: 2005Q4

REPORT INFORMATION
  Report Type: 
  Country: None (occurrence: None)
  Receive Date: 20051004
  Receipt Date: 20050922
  Transmission Date: 20060501
  Serious: Yes (Life-Threatening, Hospitalization, Other)
  Sender: FDA-Public Use
  Company Number: AT-JNJFOC-20050700429

PATIENT
  Age: 64 Year
  Sex: Female
  Weight: 80 kg

DRUGS (10)
  1. REMICADE [Suspect]
     Route: 042
  2. REMICADE [Suspect]
     Indication: ERYTHEMA NODOSUM
     Route: 042
  3. CYCLOSPORINE [Concomitant]
     Indication: AUTOIMMUNE HEPATITIS
     Route: 048
  4. MEBEVERINE HYDROCHLORIDE [Concomitant]
     Indication: COLITIS
     Route: 048
  5. URSODEOXYCHOLIC ACID [Concomitant]
     Indication: COLITIS
     Route: 048
  6. PANCREATIN [Concomitant]
     Indication: PANCREATIC INSUFFICIENCY
     Route: 048
  7. PAROXETINE HCL [Concomitant]
     Indication: DEPRESSION
     Route: 048
  8. AMITRIPTYLIN-HCL [Concomitant]
     Indication: DEPRESSION
     Route: 048
  9. INDAPAMID [Concomitant]
     Indication: DIURETIC THERAPY
     Route: 048
  10. ASPIRIN [Concomitant]
     Indication: THROMBOSIS PROPHYLAXIS
     Route: 048

REACTIONS (1)
  - PULMONARY TUBERCULOSIS [None]
